FAERS Safety Report 7626492-2 (Version None)
Quarter: 2011Q3

REPORT INFORMATION
  Report Type: 
  Country: None (occurrence: None)
  Receive Date: 20110721
  Receipt Date: 20110429
  Transmission Date: 20111222
  Serious: No
  Sender: FDA-Public Use
  Company Number: US-NOVEN-11US002381

PATIENT
  Sex: Female

DRUGS (2)
  1. FENTANYL [Suspect]
     Dosage: 25 UG, Q72H
     Route: 062
     Dates: start: 20100101, end: 20110401
  2. FENTANYL [Suspect]
     Indication: SPINAL COLUMN STENOSIS
     Dosage: 50 UG, Q72HR
     Route: 062
     Dates: start: 20110401

REACTIONS (2)
  - FEELING ABNORMAL [None]
  - INADEQUATE ANALGESIA [None]
